FAERS Safety Report 4498002-2 (Version None)
Quarter: 2004Q4

REPORT INFORMATION
  Report Type: 
  Country: None (occurrence: None)
  Receive Date: 20041109
  Receipt Date: 20041109
  Transmission Date: 20050328
  Serious: Yes (Hospitalization)
  Sender: FDA-Public Use
  Company Number: None

PATIENT
  Age: 55 Year
  Sex: Male
  Weight: 97.3 kg

DRUGS (3)
  1. LISINOPRIL [Suspect]
     Indication: HYPERTENSION
     Dosage: 10 MG PO EACH DAY
     Route: 048
     Dates: start: 20030701, end: 20040726
  2. NAPROXEN [Concomitant]
  3. SIMVASTATIN [Concomitant]

REACTIONS (4)
  - DYSPHAGIA [None]
  - HYPOAESTHESIA [None]
  - SWELLING FACE [None]
  - THROAT TIGHTNESS [None]
